FAERS Safety Report 7771191-X (Version None)
Quarter: 2011Q3

REPORT INFORMATION
  Report Type: 
  Country: None (occurrence: None)
  Receive Date: 20110922
  Receipt Date: 20110607
  Transmission Date: 20111222
  Serious: Yes (Other)
  Sender: FDA-Public Use
  Company Number: US-ASTRAZENECA-2010SE42147

PATIENT
  Age: 54 Year
  Sex: Female
  Weight: 99.8 kg

DRUGS (4)
  1. SEROQUEL XR [Suspect]
     Indication: SCHIZOAFFECTIVE DISORDER
     Route: 048
  2. CELEXA [Concomitant]
  3. KLONOPIN [Concomitant]
  4. BLOOD PRESSURE MEDICATION [Concomitant]

REACTIONS (7)
  - PSYCHOTIC DISORDER [None]
  - DRUG WITHDRAWAL SYNDROME [None]
  - DRUG DOSE OMISSION [None]
  - JOINT SWELLING [None]
  - SUICIDAL IDEATION [None]
  - INSOMNIA [None]
  - SLEEP TERROR [None]
